FAERS Safety Report 8559936-2 (Version None)
Quarter: 2012Q3

REPORT INFORMATION
  Report Type: 
  Country: None (occurrence: None)
  Receive Date: 20120802
  Receipt Date: 20120801
  Transmission Date: 20120928
  Serious: Yes (Hospitalization, Other)
  Sender: FDA-Public Use
  Company Number: PHHY2012NL066247

PATIENT
  Sex: Female

DRUGS (3)
  1. ZOMETA [Suspect]
     Indication: BREAST CANCER METASTATIC
     Dosage: 4 MG/100 ML ONCE PER 28 DAYS
     Route: 042
  2. ZOMETA [Suspect]
     Dosage: 4 MG/100 ML ONCE PER 28 DAYS
     Route: 042
     Dates: start: 20120606
  3. ZOMETA [Suspect]
     Dosage: 4 MG/100 ML ONCE PER 28 DAYS
     Route: 042
     Dates: start: 20120704

REACTIONS (1)
  - TERMINAL STATE [None]
